FAERS Safety Report 7222000-9 (Version None)
Quarter: 2011Q1

REPORT INFORMATION
  Report Type: 
  Country: None (occurrence: None)
  Receive Date: 20110112
  Receipt Date: 20110103
  Transmission Date: 20110831
  Serious: Yes (Hospitalization)
  Sender: FDA-Public Use
  Company Number: FR-ASTRAZENECA-2011SE00666

PATIENT
  Sex: Male

DRUGS (25)
  1. ABSTRAL [Concomitant]
     Route: 002
     Dates: start: 20101101
  2. LYRICA [Suspect]
     Route: 048
     Dates: start: 20101023
  3. CIPROFLOXACIN HYDROCHLORIDE [Concomitant]
     Route: 048
     Dates: start: 20101101
  4. CALCIPARINE [Concomitant]
  5. SOLUPRED [Suspect]
     Route: 048
     Dates: start: 20101024
  6. LOVENOX [Suspect]
     Route: 058
     Dates: start: 20101101, end: 20101107
  7. BRISTOPEN [Concomitant]
     Dates: start: 20101101
  8. STILNOX [Concomitant]
  9. PROFENID [Suspect]
     Route: 042
     Dates: start: 20101105, end: 20101105
  10. OXYCODONE HCL [Suspect]
     Indication: PAIN
     Route: 048
     Dates: start: 20101023
  11. LASIX [Concomitant]
     Route: 042
     Dates: start: 20101105, end: 20101105
  12. SOLUDACTONE [Concomitant]
  13. AMLOR [Concomitant]
     Route: 048
     Dates: start: 20101107
  14. LASIX [Concomitant]
     Route: 042
     Dates: start: 20101109, end: 20101121
  15. ACUPAN [Concomitant]
     Route: 042
     Dates: start: 20101106
  16. MOPRAL [Suspect]
     Route: 048
     Dates: start: 20101023, end: 20101025
  17. PROFENID [Suspect]
     Route: 048
     Dates: start: 20101023, end: 20101025
  18. ATARAX [Suspect]
     Route: 042
     Dates: start: 20101025, end: 20101026
  19. FORLAX [Concomitant]
  20. SPASFON [Concomitant]
  21. HUMALOG [Concomitant]
  22. FARMORUBICIN [Suspect]
     Route: 042
     Dates: start: 20100905
  23. TAXOL [Suspect]
     Route: 042
     Dates: start: 20100905
  24. PERFALGAN [Concomitant]
     Route: 042
     Dates: start: 20101101, end: 20101106
  25. LASIX [Concomitant]

REACTIONS (1)
  - NEPHROTIC SYNDROME [None]
